FAERS Safety Report 4961810-5 (Version None)
Quarter: 2006Q2

REPORT INFORMATION
  Report Type: 
  Country: None (occurrence: None)
  Receive Date: 20060404
  Receipt Date: 20060308
  Transmission Date: 20061013
  Serious: Yes (Hospitalization, Other)
  Sender: FDA-Public Use
  Company Number: CA-GLAXOSMITHKLINE-A0597016A

PATIENT
  Age: 29 Year
  Sex: Female
  Weight: 63.6 kg

DRUGS (5)
  1. LAMICTAL [Suspect]
     Dosage: 400MG TWICE PER DAY
     Route: 048
     Dates: start: 20051018, end: 20060308
  2. LITHIUM [Suspect]
     Indication: DRUG USE FOR UNKNOWN INDICATION
     Route: 048
  3. ATIVAN [Suspect]
     Indication: DRUG USE FOR UNKNOWN INDICATION
     Dosage: 1MG AS REQUIRED
     Route: 065
  4. ZYPREXA [Suspect]
  5. UNSPECIFIED MEDICATION [Suspect]

REACTIONS (4)
  - DEPRESSED LEVEL OF CONSCIOUSNESS [None]
  - OVERDOSE [None]
  - RASH ERYTHEMATOUS [None]
  - RASH PRURITIC [None]
